FAERS Safety Report 10151883 (Version 1)
Quarter: 2014Q2

REPORT INFORMATION
  Report Type: Spontaneous
  Country: US (occurrence: US)
  Receive Date: 20140505
  Receipt Date: 20140505
  Transmission Date: 20141212
  Serious: No
  Sender: FDA-Public Use
  Company Number: US-009507513-1404USA009939

PATIENT
  Sex: 0
  Weight: 56.24 kg

DRUGS (1)
  1. IMPLANON [Suspect]
     Dosage: 1 ROD, UNK
     Route: 059
     Dates: start: 201104, end: 20140415

REACTIONS (4)
  - Device breakage [Unknown]
  - Complication of device removal [Unknown]
  - Product shape issue [Unknown]
  - No adverse event [Unknown]
